FAERS Safety Report 6733300-0 (Version None)
Quarter: 2010Q2

REPORT INFORMATION
  Report Type: 
  Country: None (occurrence: None)
  Receive Date: 20100520
  Receipt Date: 20100519
  Transmission Date: 20101027
  Serious: Yes (Other)
  Sender: FDA-Public Use
  Company Number: JP-JNJFOC-20091100752

PATIENT
  Age: 20 Year
  Sex: Male

DRUGS (7)
  1. ITRACONAZOLE [Suspect]
     Indication: OSTEOMYELITIS FUNGAL
     Route: 048
  2. ITRACONAZOLE [Suspect]
     Indication: PROPHYLAXIS
     Route: 048
  3. ITRACONAZOLE [Suspect]
     Route: 042
  4. ITRACONAZOLE [Suspect]
     Route: 048
  5. ITRACONAZOLE [Suspect]
     Route: 048
  6. MICAFUNGIN [Suspect]
     Indication: OSTEOMYELITIS FUNGAL
     Route: 042
  7. INTERFERON GAMMA [Suspect]
     Indication: OSTEOMYELITIS FUNGAL
     Route: 065

REACTIONS (4)
  - C-REACTIVE PROTEIN INCREASED [None]
  - DRUG LEVEL INCREASED [None]
  - TREATMENT FAILURE [None]
  - WRONG TECHNIQUE IN DRUG USAGE PROCESS [None]
